FAERS Safety Report 12144400 (Version 2)
Quarter: 2016Q1

REPORT INFORMATION
  Report Type: Spontaneous
  Country: US (occurrence: US)
  Receive Date: 20160304
  Receipt Date: 20160321
  Transmission Date: 20160526
  Serious: No
  Sender: FDA-Public Use
  Company Number: US-PFIZER INC-2016133935

PATIENT
  Age: 48 Year
  Sex: Male

DRUGS (4)
  1. LISINOPRIL. [Suspect]
     Active Substance: LISINOPRIL
  2. LYRICA [Suspect]
     Active Substance: PREGABALIN
  3. IBC [Suspect]
     Active Substance: FERROUS SULFATE\FOLIC ACID\VITAMINS
  4. BACTRIM [Suspect]
     Active Substance: SULFAMETHOXAZOLE\TRIMETHOPRIM

REACTIONS (1)
  - Drug hypersensitivity [Unknown]
